FAERS Safety Report 4865468-5 (Version None)
Quarter: 2005Q4

REPORT INFORMATION
  Report Type: 
  Country: None (occurrence: None)
  Receive Date: 20051223
  Receipt Date: 20051213
  Transmission Date: 20060501
  Serious: Yes (Life-Threatening, Hospitalization)
  Sender: FDA-Public Use
  Company Number: AU-ROCHE-428459

PATIENT
  Age: 61 Year
  Sex: Female

DRUGS (6)
  1. NAPROSYN CR [Suspect]
     Indication: RHEUMATOID ARTHRITIS
     Route: 048
     Dates: start: 20030615, end: 20031107
  2. ARAVA [Suspect]
     Indication: RHEUMATOID ARTHRITIS
     Route: 048
     Dates: start: 20030615, end: 20031107
  3. METHOTREXATE [Suspect]
     Indication: RHEUMATOID ARTHRITIS
     Dosage: THE PATIENT WAS TAKING METHOTREXATE SINCE A LONG TIME.
     Route: 065
     Dates: end: 20031107
  4. PREDNISONE 50MG TAB [Concomitant]
  5. CALCIUM CITRATE [Concomitant]
  6. MEGAFOL [Concomitant]

REACTIONS (2)
  - LUNG INFILTRATION [None]
  - RESPIRATORY FAILURE [None]
